FAERS Safety Report 6815234-6 (Version None)
Quarter: 2010Q3

REPORT INFORMATION
  Report Type: 
  Country: None (occurrence: None)
  Receive Date: 20100701
  Receipt Date: 20100701
  Transmission Date: 20110219
  Serious: Yes (Hospitalization)
  Sender: FDA-Public Use
  Company Number: None

PATIENT
  Sex: Female
  Weight: 61.2 kg

DRUGS (4)
  1. BENDAMUSTINE 120 MG/M2 CEPHALON [Suspect]
     Indication: SMALL CELL LUNG CANCER STAGE UNSPECIFIED
     Dosage: 200 MG D1, D2 Q 21 DAYS IV
     Route: 042
     Dates: start: 20100524
  2. BENDAMUSTINE 120 MG/M2 CEPHALON [Suspect]
     Indication: SMALL CELL LUNG CANCER STAGE UNSPECIFIED
     Dosage: 200 MG D1, D2 Q 21 DAYS IV
     Route: 042
     Dates: start: 20100525
  3. BENDAMUSTINE 120 MG/M2 CEPHALON [Suspect]
     Indication: SMALL CELL LUNG CANCER STAGE UNSPECIFIED
     Dosage: 200 MG D1, D2 Q 21 DAYS IV
     Route: 042
     Dates: start: 20100614
  4. BENDAMUSTINE 120 MG/M2 CEPHALON [Suspect]
     Indication: SMALL CELL LUNG CANCER STAGE UNSPECIFIED
     Dosage: 200 MG D1, D2 Q 21 DAYS IV
     Route: 042
     Dates: start: 20100615

REACTIONS (3)
  - ARTHRALGIA [None]
  - FALL [None]
  - HIP FRACTURE [None]
